FAERS Safety Report 5020681-1 (Version None)
Quarter: 2006Q2

REPORT INFORMATION
  Report Type: 
  Country: None (occurrence: None)
  Receive Date: 20060602
  Receipt Date: 20060512
  Transmission Date: 20061013
  Serious: Yes (Other)
  Sender: FDA-Public Use
  Company Number: US200605001516

PATIENT
  Age: 78 Year
  Sex: Male

DRUGS (1)
  1. CIALIS [Suspect]
     Indication: OFF LABEL USE
     Dosage: 20 MG,
     Dates: start: 20060201, end: 20060101

REACTIONS (4)
  - DEEP VEIN THROMBOSIS [None]
  - ERYTHEMA [None]
  - PAIN [None]
  - SKIN WARM [None]
